FAERS Safety Report 6471523-9 (Version None)
Quarter: 2009Q4

REPORT INFORMATION
  Report Type: 
  Country: None (occurrence: None)
  Receive Date: 20091203
  Receipt Date: 20080414
  Transmission Date: 20100525
  Serious: Yes (Hospitalization, Other)
  Sender: FDA-Public Use
  Company Number: US-ELI_LILLY_AND_COMPANY-US200802005938

PATIENT
  Age: 79 Year
  Sex: Male

DRUGS (9)
  1. FORTEO [Suspect]
     Indication: OSTEOPOROSIS
     Dates: start: 20070501
  2. AMARYL [Concomitant]
     Dosage: 2 MG, DAILY (1/D)
     Route: 048
  3. TOPROL-XL [Concomitant]
     Dosage: 25 MG, DAILY (1/D)
     Route: 048
  4. PRAVACHOL [Concomitant]
     Dosage: 40 MG, DAILY (1/D)
     Route: 048
  5. PLAVIX [Concomitant]
     Dosage: 75 MG, DAILY (1/D)
     Route: 048
  6. LASIX [Concomitant]
     Dosage: 40 MG, DAILY (1/D)
     Route: 048
  7. DIGOXIN [Concomitant]
     Dosage: 0.25 MG, DAILY (1/D)
     Route: 048
  8. ENALAPRIL [Concomitant]
     Dosage: 20 MG, DAILY (1/D)
     Route: 048
  9. COUMADIN [Concomitant]

REACTIONS (5)
  - BLOOD GLUCOSE DECREASED [None]
  - DIZZINESS [None]
  - LOSS OF CONSCIOUSNESS [None]
  - ORTHOSTATIC HYPOTENSION [None]
  - SYNCOPE [None]
